APPROVED DRUG PRODUCT: TRIGLIDE
Active Ingredient: FENOFIBRATE
Strength: 160MG
Dosage Form/Route: TABLET;ORAL
Application: N021350 | Product #002
Applicant: JAGOTEC AG
Approved: May 7, 2005 | RLD: Yes | RS: No | Type: DISCN